FAERS Safety Report 9226348 (Version 1)
Quarter: 2013Q2

REPORT INFORMATION
  Report Type: Spontaneous
  Country: US (occurrence: US)
  Receive Date: 20130411
  Receipt Date: 20130411
  Transmission Date: 20140414
  Serious: Yes (Other)
  Sender: FDA-Public Use
  Company Number: US-SANOFI-AVENTIS-2013SA037148

PATIENT
  Sex: Male

DRUGS (5)
  1. PLAVIX [Suspect]
     Dosage: START DATE : APPX LAST 10 YEARS
  2. ASPIRIN [Concomitant]
  3. ASPIRIN [Concomitant]
  4. ENBREL [Concomitant]
     Indication: ARTHRITIS
  5. ADVIL [Concomitant]
     Dosage: TAKING OCCASIONALLY

REACTIONS (1)
  - Atrial thrombosis [Unknown]
